FAERS Safety Report 14117115 (Version 1)
Quarter: 2017Q4

REPORT INFORMATION
  Report Type: Spontaneous
  Country: US (occurrence: US)
  Receive Date: 20171023
  Receipt Date: 20171023
  Transmission Date: 20180321
  Serious: Yes (Other)
  Sender: FDA-Public Use
  Company Number: US-NAPPMUNDI-USA-2017-0140952

PATIENT
  Sex: Female

DRUGS (1)
  1. OXYCODONE HYDROCHLORIDE (SIMILAR TO NDA 22-272) [Suspect]
     Active Substance: OXYCODONE HYDROCHLORIDE
     Indication: PAIN
     Dosage: UNK
     Route: 048

REACTIONS (11)
  - Agitation [Unknown]
  - Nausea [Unknown]
  - Unevaluable event [Unknown]
  - Drug dependence [Recovered/Resolved]
  - Food allergy [Unknown]
  - Abdominal distension [Unknown]
  - Pain [Unknown]
  - Feeling abnormal [Unknown]
  - Gastrooesophageal reflux disease [Unknown]
  - Functional gastrointestinal disorder [Unknown]
  - Abdominal discomfort [Unknown]
